FAERS Safety Report 15052825 (Version 4)
Quarter: 2018Q3

REPORT INFORMATION
  Report Type: Report from Study
  Country: CA (occurrence: CA)
  Receive Date: 20180622
  Receipt Date: 20180714
  Transmission Date: 20181010
  Serious: Yes (Other)
  Sender: FDA-Public Use
  Company Number: CA-HLSUS-2018-CA-001002

PATIENT
  Age: 33 Year
  Sex: Male

DRUGS (1)
  1. CLOZARIL [Suspect]
     Active Substance: CLOZAPINE
     Dosage: 400MG DAILY
     Route: 048
     Dates: start: 20130405, end: 20180706

REACTIONS (3)
  - Acute myeloid leukaemia [Unknown]
  - Neutropenia [Unknown]
  - Eating disorder [Unknown]

NARRATIVE: CASE EVENT DATE: 20180704
